FAERS Safety Report 5243655-4 (Version None)
Quarter: 2007Q1

REPORT INFORMATION
  Report Type: 
  Country: None (occurrence: None)
  Receive Date: 20070222
  Receipt Date: 20070213
  Transmission Date: 20070707
  Serious: Yes (Hospitalization, Other)
  Sender: FDA-Public Use
  Company Number: DE-JNJFOC-20061002194

PATIENT
  Age: 68 Year
  Sex: Female
  Weight: 120 kg

DRUGS (1)
  1. REMICADE [Suspect]
     Indication: WEBER-CHRISTIAN DISEASE
     Dosage: 4 INFUSIONS
     Route: 042

REACTIONS (3)
  - LEUKOCYTOCLASTIC VASCULITIS [None]
  - LYMPHADENITIS [None]
  - YERSINIA INFECTION [None]
